FAERS Safety Report 26083868 (Version 1)
Quarter: 2025Q4

REPORT INFORMATION
  Report Type: Spontaneous
  Country: US (occurrence: US)
  Receive Date: 20251124
  Receipt Date: 20251124
  Transmission Date: 20260117
  Serious: No
  Sender: MYLAN
  Company Number: US-MYLANLABS-2025M1081345

PATIENT
  Age: 82 Year
  Sex: Female
  Weight: 32.66 kg

DRUGS (16)
  1. WIXELA INHUB [Suspect]
     Active Substance: FLUTICASONE PROPIONATE\SALMETEROL XINAFOATE
     Indication: Chronic obstructive pulmonary disease
     Dosage: 250 PER 50 MICROGRAM, TID (THREE TIMES A DAY)
  2. WIXELA INHUB [Suspect]
     Active Substance: FLUTICASONE PROPIONATE\SALMETEROL XINAFOATE
     Dosage: 250 PER 50 MICROGRAM, TID (THREE TIMES A DAY)
     Route: 055
  3. WIXELA INHUB [Suspect]
     Active Substance: FLUTICASONE PROPIONATE\SALMETEROL XINAFOATE
     Dosage: 250 PER 50 MICROGRAM, TID (THREE TIMES A DAY)
     Route: 055
  4. WIXELA INHUB [Suspect]
     Active Substance: FLUTICASONE PROPIONATE\SALMETEROL XINAFOATE
     Dosage: 250 PER 50 MICROGRAM, TID (THREE TIMES A DAY)
  5. GABAPENTIN [Concomitant]
     Active Substance: GABAPENTIN
     Dosage: 300 MILLIGRAM, TID (THREE TIMES A DAY)
  6. GABAPENTIN [Concomitant]
     Active Substance: GABAPENTIN
     Dosage: 300 MILLIGRAM, TID (THREE TIMES A DAY)
     Route: 065
  7. GABAPENTIN [Concomitant]
     Active Substance: GABAPENTIN
     Dosage: 300 MILLIGRAM, TID (THREE TIMES A DAY)
     Route: 065
  8. GABAPENTIN [Concomitant]
     Active Substance: GABAPENTIN
     Dosage: 300 MILLIGRAM, TID (THREE TIMES A DAY)
  9. PROZAC [Concomitant]
     Active Substance: FLUOXETINE HYDROCHLORIDE
     Dosage: 30 MILLIGRAM, QD (ONCE A DAY)
  10. PROZAC [Concomitant]
     Active Substance: FLUOXETINE HYDROCHLORIDE
     Dosage: 30 MILLIGRAM, QD (ONCE A DAY)
     Route: 065
  11. PROZAC [Concomitant]
     Active Substance: FLUOXETINE HYDROCHLORIDE
     Dosage: 30 MILLIGRAM, QD (ONCE A DAY)
     Route: 065
  12. PROZAC [Concomitant]
     Active Substance: FLUOXETINE HYDROCHLORIDE
     Dosage: 30 MILLIGRAM, QD (ONCE A DAY)
  13. XANAX [Concomitant]
     Active Substance: ALPRAZOLAM
     Dosage: 2.5 MILLIGRAM, QD (ONCE A DAY)
  14. XANAX [Concomitant]
     Active Substance: ALPRAZOLAM
     Dosage: 2.5 MILLIGRAM, QD (ONCE A DAY)
     Route: 065
  15. XANAX [Concomitant]
     Active Substance: ALPRAZOLAM
     Dosage: 2.5 MILLIGRAM, QD (ONCE A DAY)
     Route: 065
  16. XANAX [Concomitant]
     Active Substance: ALPRAZOLAM
     Dosage: 2.5 MILLIGRAM, QD (ONCE A DAY)

REACTIONS (3)
  - Product use issue [Unknown]
  - Device issue [Unknown]
  - Device delivery system issue [Unknown]

NARRATIVE: CASE EVENT DATE: 20250901
